FAERS Safety Report 20232034 (Version 1)
Quarter: 2021Q4

REPORT INFORMATION
  Report Type: Report from Study
  Country: US (occurrence: US)
  Receive Date: 20211227
  Receipt Date: 20211227
  Transmission Date: 20220303
  Serious: Yes (Other)
  Sender: FDA-Public Use
  Company Number: US-KOREA IPSEN Pharma-2021-32819

PATIENT
  Sex: Male

DRUGS (1)
  1. SOMATULINE DEPOT [Suspect]
     Active Substance: LANREOTIDE ACETATE
     Indication: Carcinoid tumour
     Dosage: 90MG/0.3ML, STARTED 4 YEARS AGO
     Route: 058
     Dates: start: 2017

REACTIONS (2)
  - Sarcoidosis [Recovering/Resolving]
  - Blood magnesium decreased [Recovering/Resolving]
